FAERS Safety Report 15801378 (Version 1)
Quarter: 2019Q1

REPORT INFORMATION
  Report Type: Spontaneous
  Country: SK (occurrence: SK)
  Receive Date: 20190109
  Receipt Date: 20190109
  Transmission Date: 20190417
  Serious: Yes (Hospitalization, Other)
  Sender: FDA-Public Use
  Company Number: SK-BRISTOL-MYERS SQUIBB COMPANY-BMS-2019-000972

PATIENT
  Age: 56 Year
  Sex: Male
  Weight: 89 kg

DRUGS (5)
  1. AUGMENTIN [Concomitant]
     Active Substance: AMOXICILLIN\CLAVULANATE POTASSIUM
     Indication: HYPERTONIA
     Dosage: 0.1 G, UNK
     Route: 065
     Dates: start: 2015
  2. ACITRETIN. [Concomitant]
     Active Substance: ACITRETIN
     Indication: HYPERTONIA
     Dosage: 50 MG, QD
     Route: 065
     Dates: start: 2015
  3. METFORMIN HYDROCHLORIDE. [Suspect]
     Active Substance: METFORMIN HYDROCHLORIDE
     Indication: TYPE 2 DIABETES MELLITUS
     Dosage: 850 MG, BID
     Route: 048
  4. CLINDAMYCIN. [Concomitant]
     Active Substance: CLINDAMYCIN
     Indication: HYPERTONIA
     Route: 065
  5. ADALIMUMAB [Concomitant]
     Active Substance: ADALIMUMAB
     Indication: DISEASE PROGRESSION
     Dosage: UNK
     Route: 065
     Dates: start: 201508, end: 2017

REACTIONS (6)
  - Paradoxical drug reaction [Unknown]
  - Cerebral haemorrhage [Recovering/Resolving]
  - Dermatitis psoriasiform [Unknown]
  - Nephropathy [Unknown]
  - Cardiomyopathy [Unknown]
  - Hypergammaglobulinaemia benign monoclonal [Unknown]

NARRATIVE: CASE EVENT DATE: 201512
